FAERS Safety Report 5742403-9 (Version None)
Quarter: 2008Q2

REPORT INFORMATION
  Report Type: 
  Country: None (occurrence: None)
  Receive Date: 20080514
  Receipt Date: 20080514
  Transmission Date: 20081010
  Serious: Yes (Hospitalization)
  Sender: FDA-Public Use
  Company Number: None

PATIENT
  Age: 77 Year
  Sex: Male
  Weight: 70 kg

DRUGS (1)
  1. ERTAPENEM [Suspect]
     Indication: URINARY TRACT INFECTION
     Dosage: 1 GM EVERY DAY PO
     Route: 048
     Dates: start: 20080326, end: 20080402

REACTIONS (2)
  - CONVULSION [None]
  - TONIC CLONIC MOVEMENTS [None]
